FAERS Safety Report 11592577 (Version 2)
Quarter: 2015Q4

REPORT INFORMATION
  Report Type: Spontaneous
  Country: RU (occurrence: RU)
  Receive Date: 20151005
  Receipt Date: 20151222
  Transmission Date: 20160304
  Serious: Yes (Hospitalization, Other)
  Sender: FDA-Public Use
  Company Number: RU-BAYER-2015-407630

PATIENT
  Age: 23 Year
  Sex: Female

DRUGS (2)
  1. YAZ [Suspect]
     Active Substance: DROSPIRENONE\ETHINYL ESTRADIOL
     Indication: MENSTRUAL CYCLE MANAGEMENT
     Dosage: UNK
     Route: 048
  2. YAZ [Suspect]
     Active Substance: DROSPIRENONE\ETHINYL ESTRADIOL
     Indication: DYSMENORRHOEA

REACTIONS (8)
  - Drug dose omission [None]
  - Withdrawal bleed [None]
  - Candida infection [Not Recovered/Not Resolved]
  - Ovarian cyst [Recovered/Resolved]
  - Adnexa uteri pain [Recovered/Resolved]
  - Off label use [None]
  - Ovarian cyst ruptured [None]
  - Dyspareunia [None]

NARRATIVE: CASE EVENT DATE: 2015
